FAERS Safety Report 18964487 (Version 2)
Quarter: 2022Q1

REPORT INFORMATION
  Report Type: Spontaneous
  Country: US (occurrence: US)
  Receive Date: 20210303
  Receipt Date: 20220224
  Transmission Date: 20220423
  Serious: No
  Sender: FDA-Public Use
  Company Number: US-AMNEAL PHARMACEUTICALS-2020-AMRX-03434

PATIENT
  Age: 73 Year
  Sex: Female
  Weight: 48.98 kg

DRUGS (2)
  1. RYTARY [Suspect]
     Active Substance: CARBIDOPA\LEVODOPA
     Indication: Product used for unknown indication
     Dosage: 3 CAPSULES, 5X/DAY
     Route: 048
     Dates: end: 20210315
  2. RYTARY [Suspect]
     Active Substance: CARBIDOPA\LEVODOPA
     Dosage: 14 CAPSULES, DAILY (2 CAPSULE AT 5.30 AM AND 3 CAPSULE AT 10AM, 1PM, 6PM AND 9PM)
     Route: 048
     Dates: start: 20210716

REACTIONS (4)
  - Tooth disorder [Unknown]
  - Weight decreased [Unknown]
  - Treatment noncompliance [Unknown]
  - Therapy cessation [Unknown]

NARRATIVE: CASE EVENT DATE: 20210315
